FAERS Safety Report 20711877 (Version 1)
Quarter: 2022Q2

REPORT INFORMATION
  Report Type: Spontaneous
  Country: US (occurrence: US)
  Receive Date: 20220414
  Receipt Date: 20220414
  Transmission Date: 20220721
  Serious: Yes (Hospitalization, Other)
  Sender: FDA-Public Use
  Company Number: US-MALLINCKRODT-T202201718

PATIENT
  Age: 25 Year
  Sex: Female

DRUGS (2)
  1. INOMAX [Suspect]
     Active Substance: NITRIC OXIDE
     Indication: Acute pulmonary oedema
     Dosage: UNK (INHALATION)
     Route: 055
  2. LOVENOX [Concomitant]
     Active Substance: ENOXAPARIN SODIUM
     Indication: Antiphospholipid syndrome
     Dosage: UNK
     Route: 065

REACTIONS (6)
  - Iliac artery occlusion [Unknown]
  - Post procedural complication [Unknown]
  - Cardiogenic shock [Unknown]
  - Ventricular hypokinesia [Unknown]
  - Product use in unapproved indication [Unknown]
  - Product use issue [Unknown]
